FAERS Safety Report 5139425-8 (Version None)
Quarter: 2006Q4

REPORT INFORMATION
  Report Type: 
  Country: None (occurrence: None)
  Receive Date: 20061030
  Receipt Date: 20060216
  Transmission Date: 20070319
  Serious: No
  Sender: FDA-Public Use
  Company Number: US-GLAXOSMITHKLINE-A0594012A

PATIENT
  Age: 69 Year
  Sex: Female

DRUGS (12)
  1. SEREVENT [Suspect]
     Indication: ASTHMA
     Dosage: 50MCG PER DAY
     Route: 055
     Dates: start: 20051201
  2. ASMACORT [Concomitant]
  3. MAXAIR [Concomitant]
  4. LORAZEPAM [Concomitant]
  5. POTASSIUM ACETATE [Concomitant]
  6. ZANTAC [Concomitant]
  7. HYDROCHLOROTHIAZIDE [Concomitant]
  8. PREMARIN [Concomitant]
  9. LISINOPRIL [Concomitant]
  10. AMITRIPTYLIN [Concomitant]
  11. UNKNOWN MEDICATION [Concomitant]
  12. ASPIRIN [Concomitant]

REACTIONS (1)
  - CANDIDIASIS [None]
